FAERS Safety Report 16027349 (Version 4)
Quarter: 2022Q1

REPORT INFORMATION
  Report Type: Report from Study
  Country: US (occurrence: US)
  Receive Date: 20190304
  Receipt Date: 20220113
  Transmission Date: 20220423
  Serious: No
  Sender: FDA-Public Use
  Company Number: PHEH2019US006598

PATIENT
  Age: 37 Year
  Sex: Male

DRUGS (1)
  1. COSENTYX [Suspect]
     Active Substance: SECUKINUMAB
     Indication: Psoriasis
     Dosage: 300 MG, QMO
     Route: 065
     Dates: start: 20160418

REACTIONS (3)
  - Upper respiratory tract infection [Unknown]
  - Pharyngitis streptococcal [Unknown]
  - Anaemia [Unknown]

NARRATIVE: CASE EVENT DATE: 20181201
